FAERS Safety Report 8223249-9 (Version None)
Quarter: 2012Q1

REPORT INFORMATION
  Report Type: 
  Country: None (occurrence: None)
  Receive Date: 20120321
  Receipt Date: 20120313
  Transmission Date: 20120608
  Serious: Yes (Other)
  Sender: FDA-Public Use
  Company Number: GR-ROCHE-1050393

PATIENT
  Age: 42 Year
  Sex: Female

DRUGS (3)
  1. POLYGAM S/D [Concomitant]
     Indication: MULTIPLE SCLEROSIS
  2. FLUTICASONE PROPIONATE/SALMETEROL [Concomitant]
     Indication: ASTHMA
     Dosage: DRUG REPORTED AS : ROLENIUM INHALER
  3. XOLAIR [Suspect]
     Indication: ASTHMA
     Dates: start: 20111001

REACTIONS (2)
  - ASTHMA [None]
  - CONDITION AGGRAVATED [None]
